FAERS Safety Report 8602776-6 (Version None)
Quarter: 2012Q3

REPORT INFORMATION
  Report Type: 
  Country: None (occurrence: None)
  Receive Date: 20120817
  Receipt Date: 20120806
  Transmission Date: 20120928
  Serious: Yes (Other)
  Sender: FDA-Public Use
  Company Number: US-JNJFOC-20120803032

PATIENT
  Sex: Female
  Weight: 79.38 kg

DRUGS (17)
  1. LYRICA [Suspect]
     Indication: VULVOVAGINAL BURNING SENSATION
     Route: 048
  2. ATIVAN [Concomitant]
     Indication: PANIC ATTACK
     Route: 065
  3. TOPAMAX [Suspect]
     Indication: FEELING HOT
     Route: 048
     Dates: start: 20070101, end: 20070101
  4. NEURONTIN [Suspect]
     Indication: CAUDA EQUINA SYNDROME
     Route: 048
     Dates: start: 20070101, end: 20070101
  5. LYRICA [Suspect]
     Route: 048
     Dates: start: 20070101, end: 20070101
  6. TOPAMAX [Suspect]
     Indication: BURNING SENSATION
     Route: 048
     Dates: start: 20070101, end: 20070101
  7. KLONOPIN [Concomitant]
     Indication: PANIC ATTACK
     Route: 065
  8. ZONISAMIDE [Suspect]
     Indication: BURNING SENSATION
     Route: 065
     Dates: start: 20070101, end: 20070101
  9. AMITRIPTYLINE HCL [Concomitant]
     Route: 065
  10. XANAX [Concomitant]
     Indication: PANIC ATTACK
     Route: 065
  11. LEVOTHYROXINE SODIUM [Concomitant]
     Indication: THYROID DISORDER
     Route: 065
  12. TOPAMAX [Suspect]
     Indication: VULVOVAGINAL BURNING SENSATION
     Route: 048
     Dates: start: 20070101, end: 20070101
  13. ZONISAMIDE [Suspect]
     Indication: VULVOVAGINAL BURNING SENSATION
     Route: 065
     Dates: start: 20070101, end: 20070101
  14. PREDNISONE TAB [Concomitant]
     Indication: CENTRAL NERVOUS SYSTEM INFLAMMATION
     Route: 042
  15. PREDNISONE TAB [Concomitant]
     Indication: CSF TEST ABNORMAL
     Route: 042
  16. PREDNISONE TAB [Concomitant]
     Indication: RESPIRATORY DISORDER
     Route: 042
  17. ZONISAMIDE [Suspect]
     Indication: FEELING HOT
     Route: 065
     Dates: start: 20070101, end: 20070101

REACTIONS (12)
  - VULVOVAGINAL BURNING SENSATION [None]
  - DYSPHEMIA [None]
  - NEUROPATHY PERIPHERAL [None]
  - SUICIDAL IDEATION [None]
  - INCORRECT DOSE ADMINISTERED [None]
  - AMNESIA [None]
  - AGGRESSION [None]
  - ANTISOCIAL BEHAVIOUR [None]
  - BACK PAIN [None]
  - PAIN IN EXTREMITY [None]
  - DEPRESSION [None]
  - MENTAL IMPAIRMENT [None]
